FAERS Safety Report 19086366 (Version 1)
Quarter: 2021Q2

REPORT INFORMATION
  Report Type: Spontaneous
  Country: US (occurrence: US)
  Receive Date: 20210401
  Receipt Date: 20210401
  Transmission Date: 20210717
  Serious: No
  Sender: FDA-Public Use
  Company Number: None

PATIENT
  Age: 45 Year
  Sex: Female
  Weight: 133.65 kg

DRUGS (12)
  1. FLONASE [Concomitant]
     Active Substance: FLUTICASONE PROPIONATE
  2. GARLIC. [Concomitant]
     Active Substance: GARLIC
  3. VITAMIN B COMPLEX [Concomitant]
     Active Substance: CYANOCOBALAMIN\DEXPANTHENOL\NIACINAMIDE\PYRIDOXINE HYDROCHLORIDE\RIBOFLAVIN 5^-PHOSPHATE SODIUM\THIAMINE HYDROCHLORIDE\VITAMIN B COMPLEX
  4. CPAP [Concomitant]
     Active Substance: DEVICE
  5. VITAMIN D3 [Concomitant]
     Active Substance: CHOLECALCIFEROL
  6. BUPROPION XL 300 MG DAILY [Suspect]
     Active Substance: BUPROPION HYDROCHLORIDE
     Indication: DEPRESSION
     Route: 048
     Dates: start: 20210325, end: 20210401
  7. FENOFIBRATE. [Concomitant]
     Active Substance: FENOFIBRATE
  8. BUSPIRONE [Concomitant]
     Active Substance: BUSPIRONE HYDROCHLORIDE
  9. TIZANIDINE. [Concomitant]
     Active Substance: TIZANIDINE
  10. GABAPENTIN. [Concomitant]
     Active Substance: GABAPENTIN
  11. PROPRANOLOL [Concomitant]
     Active Substance: PROPRANOLOL HYDROCHLORIDE
  12. LYSINE [Concomitant]
     Active Substance: LYSINE

REACTIONS (7)
  - Headache [None]
  - Cognitive disorder [None]
  - Pruritus [None]
  - Crying [None]
  - Product substitution issue [None]
  - Skin disorder [None]
  - Tremor [None]

NARRATIVE: CASE EVENT DATE: 20210401
